FAERS Safety Report 11020070 (Version 2)
Quarter: 2015Q2

REPORT INFORMATION
  Report Type: Spontaneous
  Country: US (occurrence: US)
  Receive Date: 20150412
  Receipt Date: 20150525
  Transmission Date: 20150821
  Serious: Yes (Other)
  Sender: FDA-Public Use
  Company Number: US-JNJFOC-20111107148

PATIENT
  Age: 64 Year
  Sex: Male

DRUGS (6)
  1. LEVAQUIN [Suspect]
     Active Substance: LEVOFLOXACIN
     Indication: EAR INFECTION
     Route: 048
  2. LEVAQUIN [Suspect]
     Active Substance: LEVOFLOXACIN
     Indication: EAR INFECTION
     Route: 048
     Dates: start: 20070101, end: 20091030
  3. TRICOR [Concomitant]
     Active Substance: FENOFIBRATE
     Indication: PROPHYLAXIS
     Route: 065
     Dates: start: 2003
  4. LEVAQUIN [Suspect]
     Active Substance: LEVOFLOXACIN
     Indication: SINUSITIS
     Route: 048
  5. LEVAQUIN [Suspect]
     Active Substance: LEVOFLOXACIN
     Indication: SINUSITIS
     Route: 048
     Dates: start: 20070101, end: 20091030
  6. METFORMIN [Concomitant]
     Active Substance: METFORMIN HYDROCHLORIDE
     Indication: DIABETES MELLITUS
     Route: 065
     Dates: start: 1993

REACTIONS (1)
  - Tendonitis [Unknown]

NARRATIVE: CASE EVENT DATE: 200912
